FAERS Safety Report 13397993 (Version 3)
Quarter: 2019Q1

REPORT INFORMATION
  Report Type: Spontaneous
  Country: US (occurrence: US)
  Receive Date: 20170403
  Receipt Date: 20190111
  Transmission Date: 20190417
  Serious: No
  Sender: FDA-Public Use
  Company Number: US-ASTRAZENECA-2017SE31115

PATIENT
  Age: 73 Year
  Sex: Female
  Weight: 67.1 kg

DRUGS (2)
  1. TAGRISSO [Suspect]
     Active Substance: OSIMERTINIB
     Indication: LUNG CARCINOMA CELL TYPE UNSPECIFIED STAGE 0
     Route: 048
     Dates: start: 20180506
  2. TAGRISSO [Suspect]
     Active Substance: OSIMERTINIB
     Indication: LUNG NEOPLASM MALIGNANT
     Route: 048
     Dates: start: 20180506

REACTIONS (13)
  - Pain [Unknown]
  - Stomatitis [Unknown]
  - Blister [Unknown]
  - Diarrhoea [Not Recovered/Not Resolved]
  - Infection [Unknown]
  - Onychomadesis [Unknown]
  - Blister infected [Unknown]
  - Dry mouth [Unknown]
  - Rash pruritic [Unknown]
  - Blood blister [Not Recovered/Not Resolved]
  - Oral herpes [Unknown]
  - Onychoclasis [Not Recovered/Not Resolved]
  - Dry skin [Not Recovered/Not Resolved]

NARRATIVE: CASE EVENT DATE: 2016
